FAERS Safety Report 4375800-7 (Version None)
Quarter: 2004Q2

REPORT INFORMATION
  Report Type: 
  Country: None (occurrence: None)
  Receive Date: 20040609
  Receipt Date: 20040609
  Transmission Date: 20050107
  Serious: Yes (Death, Other)
  Sender: FDA-Public Use
  Company Number: None

PATIENT
  Age: 78 Year
  Sex: Male

DRUGS (6)
  1. LEXAPRO [Suspect]
     Indication: DEPRESSION
     Dosage: 10 MG DAILY / ORAL
     Route: 048
     Dates: start: 20030828, end: 20030907
  2. SIMVASTATIN [Concomitant]
  3. FAMOTIDINE [Concomitant]
  4. POTASSIUM CHLORIDE [Concomitant]
  5. VERAPAMIL HCL [Concomitant]
  6. PREDNISONE [Concomitant]

REACTIONS (5)
  - COMPLETED SUICIDE [None]
  - CONDITION AGGRAVATED [None]
  - DEPRESSION [None]
  - FEELING ABNORMAL [None]
  - GUN SHOT WOUND [None]
